FAERS Safety Report 10202662 (Version 1)
Quarter: 2014Q2

REPORT INFORMATION
  Report Type: Spontaneous
  Country: US (occurrence: US)
  Receive Date: 20140528
  Receipt Date: 20140528
  Transmission Date: 20141212
  Serious: Yes (Life-Threatening)
  Sender: FDA-Public Use
  Company Number: US-ACTAVIS-2014-11287

PATIENT
  Age: 82 Year
  Sex: Male

DRUGS (8)
  1. COLCHICINE (WATSON LABORATORIES) [Suspect]
     Indication: GOUT
     Dosage: 6 DF, DAILY
     Route: 048
  2. COLCHICINE (WATSON LABORATORIES) [Interacting]
     Dosage: 4.8 MG, DAILY
     Route: 048
  3. COLCHICINE (WATSON LABORATORIES) [Interacting]
     Dosage: 1 DF, DAILY
     Route: 048
  4. DILTIAZEM HYDROCHLORIDE (UNKNOWN) [Interacting]
     Indication: PRODUCT USED FOR UNKNOWN INDICATION
     Dosage: UNKNOWN
     Route: 065
  5. SUNITINIB [Interacting]
     Indication: RENAL CELL CARCINOMA
     Dosage: 50 MG, QPM
     Route: 065
  6. FUROSEMIDE [Concomitant]
     Indication: PRODUCT USED FOR UNKNOWN INDICATION
     Dosage: UNKNOWN
     Route: 065
  7. LEVOTHYROXINE [Concomitant]
     Indication: PRODUCT USED FOR UNKNOWN INDICATION
     Dosage: UNKNOWN
     Route: 065
  8. RABEPRAZOLE [Concomitant]
     Indication: PRODUCT USED FOR UNKNOWN INDICATION
     Dosage: UNKNOWN
     Route: 065

REACTIONS (17)
  - Metabolic acidosis [Unknown]
  - Dyspnoea [Unknown]
  - Pneumonia [Unknown]
  - Hypotension [Unknown]
  - Arterial stenosis [Unknown]
  - Hypokalaemia [Unknown]
  - Hypomagnesaemia [Unknown]
  - Leukopenia [Unknown]
  - Haemoglobin decreased [Unknown]
  - Thrombocytopenia [Recovered/Resolved]
  - Electrocardiogram T wave inversion [Unknown]
  - Diarrhoea [Unknown]
  - Chills [Unknown]
  - Pyrexia [Unknown]
  - Chest pain [Unknown]
  - Toxicity to various agents [Unknown]
  - Drug interaction [Unknown]
